FAERS Safety Report 21734645 (Version 2)
Quarter: 2023Q1

REPORT INFORMATION
  Report Type: Spontaneous
  Country: US (occurrence: US)
  Receive Date: 20221215
  Receipt Date: 20230228
  Transmission Date: 20230417
  Serious: No
  Sender: FDA-Public Use
  Company Number: US-PFIZER INC-PV202200122080

PATIENT
  Age: 77 Year
  Sex: Male

DRUGS (1)
  1. RETACRIT [Suspect]
     Active Substance: EPOETIN ALFA-EPBX
     Dosage: 40000 IU, WEEKLY (ONCE, EVERY 7 DAYS)
     Route: 058

REACTIONS (2)
  - Speech disorder [Unknown]
  - Gait disturbance [Unknown]
